FAERS Safety Report 8722882 (Version 5)
Quarter: 2013Q2

REPORT INFORMATION
  Report Type: Spontaneous
  Country: US (occurrence: US)
  Receive Date: 20120814
  Receipt Date: 20130524
  Transmission Date: 20140414
  Serious: Yes (Death, Hospitalization, Other)
  Sender: FDA-Public Use
  Company Number: US-009507513-1208USA000964

PATIENT
  Sex: Female
  Weight: 55.78 kg

DRUGS (2)
  1. FOSAMAX [Suspect]
     Indication: OSTEOPOROSIS
     Dosage: 35 MG, QW
     Route: 048
     Dates: start: 1999
  2. QUINIDINE [Concomitant]
     Indication: ARRHYTHMIA
     Dosage: 200-324 MG, BID

REACTIONS (61)
  - Open reduction of fracture [Unknown]
  - Fall [Unknown]
  - Radius fracture [Unknown]
  - Breast cancer [Unknown]
  - Basal cell carcinoma [Unknown]
  - Fractured sacrum [Unknown]
  - Back pain [Unknown]
  - Death [Fatal]
  - Femur fracture [Unknown]
  - Anxiety [Unknown]
  - Depression [Unknown]
  - Pubis fracture [Unknown]
  - Pubis fracture [Unknown]
  - Spinal compression fracture [Recovered/Resolved]
  - Rib fracture [Recovered/Resolved]
  - Osteoma [Unknown]
  - Meningioma [Unknown]
  - Fall [Unknown]
  - Pubis fracture [Recovered/Resolved]
  - Contusion [Unknown]
  - Chronic obstructive pulmonary disease [Unknown]
  - Kyphosis [Unknown]
  - Skin lesion [Unknown]
  - Bursitis [Unknown]
  - Road traffic accident [Unknown]
  - Mental disorder due to a general medical condition [Unknown]
  - Urine leukocyte esterase [Unknown]
  - Exostosis [Unknown]
  - Left ventricular hypertrophy [Unknown]
  - Aortic valve incompetence [Unknown]
  - Mitral valve calcification [Unknown]
  - Tricuspid valve incompetence [Unknown]
  - Pericardial effusion [Unknown]
  - Intervertebral disc protrusion [Unknown]
  - Lumbar spinal stenosis [Unknown]
  - Left atrial dilatation [Unknown]
  - Electrocardiogram T wave abnormal [Unknown]
  - Cardiomegaly [Unknown]
  - Cerebral atrophy [Unknown]
  - Cerebral small vessel ischaemic disease [Unknown]
  - Cardiac murmur [Unknown]
  - Abdominal bruit [Unknown]
  - Osteoarthritis [Unknown]
  - Urinary tract infection [Unknown]
  - Clostridium difficile colitis [Unknown]
  - Blood sodium decreased [Unknown]
  - Spinal cord compression [Unknown]
  - Intervertebral disc space narrowing [Unknown]
  - Vascular calcification [Unknown]
  - Gastric dilatation [Unknown]
  - Lacunar infarction [Unknown]
  - Arthritis [Unknown]
  - Arteriosclerosis coronary artery [Unknown]
  - Dementia [Unknown]
  - Restless legs syndrome [Unknown]
  - Hypertension [Unknown]
  - Atrial fibrillation [Recovered/Resolved]
  - Pulmonary fibrosis [Not Recovered/Not Resolved]
  - Osteopenia [Unknown]
  - Asthenia [Unknown]
  - Pyrexia [Recovered/Resolved]
